FAERS Safety Report 12235964 (Version 2)
Quarter: 2016Q2

REPORT INFORMATION
  Report Type: Spontaneous
  Country: US (occurrence: US)
  Receive Date: 20160404
  Receipt Date: 20160421
  Transmission Date: 20160815
  Serious: Yes (Hospitalization)
  Sender: FDA-Public Use
  Company Number: PHEH2016US007901

PATIENT
  Age: 34 Year
  Sex: Female
  Weight: 106.8 kg

DRUGS (6)
  1. LANTUS [Concomitant]
     Active Substance: INSULIN GLARGINE
     Indication: TYPE 1 DIABETES MELLITUS
     Dosage: UNK DOSE, QD
     Route: 058
  2. MEKINIST [Suspect]
     Active Substance: TRAMETINIB DIMETHYL SULFOXIDE
     Indication: METASTATIC MALIGNANT MELANOMA
     Dosage: UNK, QD
     Route: 048
     Dates: start: 20160104, end: 20160211
  3. METFORMIN [Concomitant]
     Active Substance: METFORMIN HYDROCHLORIDE
     Indication: TYPE 1 DIABETES MELLITUS
     Dosage: UNKNOWN DOSE, BID
     Route: 048
  4. TAFINLAR [Suspect]
     Active Substance: DABRAFENIB MESYLATE
     Indication: METASTATIC MALIGNANT MELANOMA
     Dosage: UNK, BID
     Route: 048
     Dates: start: 20160104, end: 20160211
  5. NOVOLOG [Concomitant]
     Active Substance: INSULIN ASPART
     Indication: TYPE 1 DIABETES MELLITUS
     Dosage: UNKNOWN DOSE, PRN AS PER SLIDING SCALE
     Route: 058
  6. LISINOPRIL. [Concomitant]
     Active Substance: LISINOPRIL
     Indication: PRODUCT USED FOR UNKNOWN INDICATION
     Dosage: UNK UNK, QD
     Route: 048

REACTIONS (11)
  - Renal failure [Unknown]
  - Pyrexia [Unknown]
  - Vomiting [Unknown]
  - Rash [Unknown]
  - Nausea [Unknown]
  - Rhabdomyolysis [Recovered/Resolved]
  - Myoglobin blood increased [Unknown]
  - Sepsis [Recovered/Resolved]
  - Blood creatinine increased [Unknown]
  - Myalgia [Unknown]
  - Blood creatine phosphokinase increased [Unknown]

NARRATIVE: CASE EVENT DATE: 20160208
